FAERS Safety Report 9236177 (Version 1)
Quarter: 2013Q2

REPORT INFORMATION
  Report Type: Spontaneous
  Country: IT (occurrence: IT)
  Receive Date: 20130417
  Receipt Date: 20130417
  Transmission Date: 20140414
  Serious: Yes (Hospitalization, Other)
  Sender: FDA-Public Use
  Company Number: IT-PFIZER INC-2013116772

PATIENT
  Age: 61 Year
  Sex: Female

DRUGS (1)
  1. XANAX [Suspect]
     Dosage: 7 DF, UNK
     Route: 048
     Dates: start: 20130128, end: 20130128

REACTIONS (4)
  - Intentional overdose [Recovering/Resolving]
  - Suicide attempt [Recovering/Resolving]
  - Confusional state [Recovering/Resolving]
  - Headache [Recovering/Resolving]
